FAERS Safety Report 24322245 (Version 1)
Quarter: 2024Q3

REPORT INFORMATION
  Report Type: Spontaneous
  Country: US (occurrence: US)
  Receive Date: 20240916
  Receipt Date: 20240916
  Transmission Date: 20241017
  Serious: Yes (Hospitalization, Other)
  Sender: HIKMA
  Company Number: US-HIKMA PHARMACEUTICALS USA INC.-US-H14001-24-07081

PATIENT
  Age: 59 Year
  Sex: Female
  Weight: 109.3 kg

DRUGS (4)
  1. HYDROMORPHONE [Suspect]
     Active Substance: HYDROMORPHONE
     Indication: Radiation associated pain
     Dosage: 2 MILLIGRAM, PRN, UP TO FOUR TIMES DAILY
     Route: 048
     Dates: start: 20230602
  2. ADO-TRASTUZUMAB EMTANSINE [Suspect]
     Active Substance: ADO-TRASTUZUMAB EMTANSINE
     Indication: Invasive breast carcinoma
     Dosage: 3 MILLIGRAM/KILOGRAM; CYCLIC, (320MG) EVERY 21 DAYS
     Route: 042
     Dates: start: 20231121, end: 20231121
  3. TUCATINIB [Suspect]
     Active Substance: TUCATINIB
     Indication: Invasive breast carcinoma
     Dosage: 300 MILLIGRAM, Q12H
     Route: 048
     Dates: start: 20231121, end: 20231216
  4. TUCATINIB [Suspect]
     Active Substance: TUCATINIB
     Dosage: 300 MILLIGRAM, Q12H
     Route: 065
     Dates: start: 20240103, end: 20240123

REACTIONS (4)
  - Colitis [Recovered/Resolved]
  - Constipation [Recovered/Resolved]
  - Abdominal pain [Recovered/Resolved]
  - Rectal haemorrhage [Unknown]

NARRATIVE: CASE EVENT DATE: 20231220
